FAERS Safety Report 10089925 (Version 1)
Quarter: 2014Q2

REPORT INFORMATION
  Report Type: Spontaneous
  Country: None (occurrence: None)
  Receive Date: 20140417
  Receipt Date: 20140417
  Transmission Date: 20141212
  Serious: Yes (Hospitalization)
  Sender: FDA-Public Use
  Company Number: 08-AUR-03384

PATIENT
  Age: 56 Year
  Sex: Male

DRUGS (1)
  1. SIMVASTATIN (SIMVASTATIN) [Suspect]
     Indication: PRODUCT USED FOR UNKNOWN INDICATION

REACTIONS (9)
  - Erythema nodosum [None]
  - Compartment syndrome [None]
  - Muscle haemorrhage [None]
  - Muscle necrosis [None]
  - Haemoglobinuria [None]
  - Pain in extremity [None]
  - Erythema [None]
  - Coronary angioplasty [None]
  - Coronary arterial stent insertion [None]
